FAERS Safety Report 12809666 (Version 1)
Quarter: 2016Q4

REPORT INFORMATION
  Report Type: Spontaneous
  Country: US (occurrence: US)
  Receive Date: 20161005
  Receipt Date: 20161005
  Transmission Date: 20170207
  Serious: Yes (Hospitalization, Other)
  Sender: FDA-Public Use
  Company Number: US-B.I. PHARMACEUTICALS,INC./RIDGEFIELD-2016-BI-63623BP

PATIENT
  Age: 68 Year
  Sex: Female

DRUGS (1)
  1. SPIRIVA [Suspect]
     Active Substance: TIOTROPIUM BROMIDE MONOHYDRATE
     Indication: CHRONIC OBSTRUCTIVE PULMONARY DISEASE
     Route: 048
     Dates: start: 2014

REACTIONS (6)
  - Dyspnoea exertional [Not Recovered/Not Resolved]
  - Road traffic accident [Recovered/Resolved]
  - Sjogren^s syndrome [Unknown]
  - Wrist fracture [Recovered/Resolved with Sequelae]
  - Tendon injury [Recovered/Resolved with Sequelae]
  - Fracture [Recovered/Resolved with Sequelae]

NARRATIVE: CASE EVENT DATE: 20151021
